FAERS Safety Report 8602223-4 (Version None)
Quarter: 2012Q3

REPORT INFORMATION
  Report Type: 
  Country: None (occurrence: None)
  Receive Date: 20120817
  Receipt Date: 20120813
  Transmission Date: 20120928
  Serious: Yes (Other)
  Sender: FDA-Public Use
  Company Number: US-PFIZER INC-2011260101

PATIENT
  Age: 75 Year
  Sex: Female
  Weight: 99.773 kg

DRUGS (10)
  1. SYNTHROID [Concomitant]
     Dosage: UNK
  2. HYDROCHLOROTHIAZIDE [Concomitant]
     Dosage: 12.5 MG, UNK
  3. LANTUS [Concomitant]
     Dosage: UNK
  4. SYNTHROID [Concomitant]
     Dosage: UNK
  5. XANAX [Concomitant]
     Dosage: 0.5 MG, UNK
  6. LYRICA [Suspect]
     Dosage: 100 MG, 3X/DAY
     Route: 048
  7. LIDODERM [Concomitant]
     Dosage: UNK
  8. LYRICA [Suspect]
     Dosage: 75 MG, 3X/DAY
     Route: 048
     Dates: start: 20110701
  9. LYRICA [Suspect]
     Indication: NEUROPATHY PERIPHERAL
     Dosage: 75 MG, 1X/DAY
     Route: 048
     Dates: start: 20090101, end: 20110701
  10. INSULIN [Concomitant]
     Dosage: UNK

REACTIONS (9)
  - DRUG INEFFECTIVE [None]
  - BLOOD TEST ABNORMAL [None]
  - ARTHROPATHY [None]
  - GAIT DISTURBANCE [None]
  - HYPOAESTHESIA [None]
  - RASH [None]
  - PARAESTHESIA [None]
  - FEELING ABNORMAL [None]
  - DYSSTASIA [None]
